FAERS Safety Report 9955209 (Version 4)
Quarter: 2014Q2

REPORT INFORMATION
  Report Type: Report from Study
  Country: US (occurrence: US)
  Receive Date: 20140304
  Receipt Date: 20140416
  Transmission Date: 20141212
  Serious: Yes (Death, Hospitalization)
  Sender: FDA-Public Use
  Company Number: US-SANOFI-AVENTIS-2013SA046983

PATIENT
  Age: 62 Year
  Sex: Female
  Weight: 98 kg

DRUGS (22)
  1. AUBAGIO [Suspect]
     Indication: MULTIPLE SCLEROSIS
     Route: 048
     Dates: start: 20121203, end: 20140219
  2. AMPYRA [Concomitant]
     Indication: MULTIPLE SCLEROSIS
     Route: 065
     Dates: end: 20140219
  3. INDAPAMIDE [Concomitant]
     Indication: BLOOD PRESSURE INCREASED
     Route: 065
     Dates: end: 20140219
  4. BISOPROLOL/HYDROCHLOROTHIAZIDE [Concomitant]
     Dosage: STRENGTH: 5/6.25 MG.
     Route: 065
     Dates: end: 20140219
  5. PANTOPRAZOLE [Concomitant]
     Route: 065
     Dates: end: 20140219
  6. LORATADINE [Concomitant]
     Route: 065
  7. ASPIRIN [Concomitant]
     Route: 065
  8. VITAMIN D [Concomitant]
     Route: 065
  9. FOLIC ACID [Concomitant]
     Route: 065
  10. VERAPAMIL [Concomitant]
     Route: 065
     Dates: start: 20131219, end: 201401
  11. MIRTAZAPINE [Concomitant]
     Route: 065
     Dates: start: 201401
  12. BACLOFEN [Concomitant]
     Indication: PAIN
     Route: 065
     Dates: start: 201402
  13. BACLOFEN [Concomitant]
     Indication: MUSCLE SPASMS
     Route: 065
     Dates: start: 201402
  14. BACLOFEN [Concomitant]
     Indication: MULTIPLE SCLEROSIS
     Route: 065
     Dates: start: 201402
  15. HYDROXYZINE [Concomitant]
     Indication: PRURITUS ALLERGIC
     Route: 065
     Dates: start: 201402
  16. AMLODIPINE [Concomitant]
     Indication: BLOOD PRESSURE INCREASED
     Route: 065
     Dates: end: 20131219
  17. CITALOPRAM [Concomitant]
     Indication: DEPRESSION
     Route: 065
     Dates: end: 201310
  18. CLONIDINE HYDROCHLORIDE [Concomitant]
     Indication: BLOOD PRESSURE INCREASED
     Dosage: ONLY IF BP SYS }60.
     Route: 065
  19. TYLENOL [Concomitant]
     Route: 065
  20. PROTEIN SUPPLEMENTS [Concomitant]
     Indication: WEIGHT DECREASED
  21. ALL OTHER THERAPEUTIC PRODUCTS [Concomitant]
     Indication: NUTRITIONAL SUPPLEMENTATION
  22. KLOR-CON [Concomitant]
     Route: 065

REACTIONS (17)
  - Death [Fatal]
  - Cerebrovascular accident [Unknown]
  - White blood cell count increased [Not Recovered/Not Resolved]
  - Abdominal discomfort [Unknown]
  - Blood pressure fluctuation [Unknown]
  - Dizziness [Unknown]
  - Poor peripheral circulation [Unknown]
  - Fatigue [Not Recovered/Not Resolved]
  - Muscle disorder [Unknown]
  - Fall [Unknown]
  - Pruritus [Unknown]
  - Protein total increased [Unknown]
  - Myalgia [Unknown]
  - Weight decreased [Unknown]
  - White blood cell count decreased [Unknown]
  - Influenza [Unknown]
  - Dehydration [Unknown]
